FAERS Safety Report 15744706 (Version 1)
Quarter: 2018Q4

REPORT INFORMATION
  Report Type: Spontaneous
  Country: US (occurrence: US)
  Receive Date: 20181205
  Receipt Date: 20181205
  Transmission Date: 20190205
  Serious: No
  Sender: FDA-Public Use
  Company Number: None

PATIENT
  Age: 36 Year
  Sex: Female
  Weight: 67.5 kg

DRUGS (10)
  1. PRISTIQ GENERIC 50MG, [Concomitant]
  2. PROAIR AS NEEDED 90 MCG [Concomitant]
  3. BIOTIN [Concomitant]
     Active Substance: BIOTIN
  4. ZYRTEC [Concomitant]
     Active Substance: CETIRIZINE HYDROCHLORIDE
  5. AIMOVIG [Suspect]
     Active Substance: ERENUMAB-AOOE
     Indication: MIGRAINE
     Dosage: ?          QUANTITY:2 INJECTION(S);OTHER FREQUENCY:MONTHLY;OTHER ROUTE:INJECTION INTO THIGH?
     Dates: start: 20181012, end: 20181112
  6. BREO 200-25 MCG/DAY, [Concomitant]
  7. IRON [Concomitant]
     Active Substance: IRON
  8. BOTOX 200 UNITS, [Concomitant]
  9. NIACINAMIDE 750MG [Concomitant]
  10. ARNUITY 1-- MCG/DAY, [Concomitant]

REACTIONS (1)
  - Alopecia [None]

NARRATIVE: CASE EVENT DATE: 20181114
